FAERS Safety Report 20853978 (Version 1)
Quarter: 2022Q2

REPORT INFORMATION
  Report Type: Spontaneous
  Country: FR (occurrence: FR)
  Receive Date: 20220520
  Receipt Date: 20220520
  Transmission Date: 20220721
  Serious: Yes (Death)
  Sender: FDA-Public Use
  Company Number: None

PATIENT
  Age: 58 Year
  Sex: Female
  Weight: 62 kg

DRUGS (4)
  1. DIAZEPAM [Suspect]
     Active Substance: DIAZEPAM
     Indication: Mixed anxiety and depressive disorder
     Dosage: 10 MG 4 FOIS PAR JOUR
     Route: 048
     Dates: start: 20220406
  2. VENLAFAXINE [Suspect]
     Active Substance: VENLAFAXINE HYDROCHLORIDE
     Indication: Mixed anxiety and depressive disorder
     Dosage: 75 MG/J DU 06/04 AU 12/04 PUIS 75 MG 2 FOIS PAR JOUR A PARTIR DU 13/04
     Route: 048
     Dates: start: 20220406
  3. OLANZAPINE [Suspect]
     Active Substance: OLANZAPINE
     Indication: Mixed anxiety and depressive disorder
     Route: 048
     Dates: start: 20220406
  4. ZOPICLONE [Suspect]
     Active Substance: ZOPICLONE
     Indication: Mixed anxiety and depressive disorder
     Route: 048
     Dates: start: 20220407

REACTIONS (1)
  - Completed suicide [Fatal]

NARRATIVE: CASE EVENT DATE: 20220417
